FAERS Safety Report 4412750-1 (Version None)
Quarter: 2004Q2

REPORT INFORMATION
  Report Type: 
  Country: None (occurrence: None)
  Receive Date: 20040630
  Receipt Date: 20040311
  Transmission Date: 20050107
  Serious: No
  Sender: FDA-Public Use
  Company Number: 04P-163-0253114-00

PATIENT
  Age: 61 Year
  Sex: Female
  Weight: 72.5755 kg

DRUGS (5)
  1. HUMIRA [Suspect]
     Indication: RHEUMATOID ARTHRITIS
     Dosage: 40 MG, 1 IN 2 WK, SUBCUTANEOUS
     Route: 058
     Dates: start: 20040222
  2. PREDNISONE [Concomitant]
  3. VICODIN [Concomitant]
  4. ACETAMINOPHEN W/ CODEINE [Concomitant]
  5. CLINDAMYCIN HYDROCHLORIDE [Concomitant]

REACTIONS (3)
  - CONDITION AGGRAVATED [None]
  - RHINORRHOEA [None]
  - TOOTHACHE [None]
